FAERS Safety Report 8925380 (Version 1)
Quarter: 2012Q4

REPORT INFORMATION
  Report Type: 
  Country: US (occurrence: US)
  Receive Date: 20121126
  Receipt Date: 20121126
  Transmission Date: 20130627
  Serious: Yes (Hospitalization, Other)
  Sender: FDA-Public Use
  Company Number: US-009507513-2009-201021-NL

PATIENT
  Age: 23 Year
  Sex: Female
  Weight: 59 kg

DRUGS (11)
  1. NUVARING [Suspect]
     Indication: CONTRACEPTION
     Dosage: CONTINUING: NO
     Route: 067
     Dates: start: 20060612, end: 200611
  2. COUMADIN [Suspect]
     Indication: THROMBOSIS
  3. LOVENOX [Suspect]
     Indication: THROMBOSIS
  4. HEPARIN [Suspect]
     Indication: THROMBOSIS
  5. HYDRO.C.SOD.SUC. [Concomitant]
     Indication: PRODUCT USED FOR UNKNOWN INDICATION
     Dosage: 0.2% CREAM
     Route: 061
     Dates: start: 20060605
  6. METROGEL (METRONIDAZOLE) [Concomitant]
     Indication: PRODUCT USED FOR UNKNOWN INDICATION
     Dosage: 0.75% VAGINAL GEL
     Dates: start: 20060612
  7. AZITHROMYCIN [Concomitant]
     Indication: PRODUCT USED FOR UNKNOWN INDICATION
     Dosage: 250 MG DOSE
     Dates: start: 20060828
  8. BENZACLIN [Concomitant]
     Indication: PRODUCT USED FOR UNKNOWN INDICATION
     Dates: start: 20060727
  9. LIQUIBID [Concomitant]
     Indication: PRODUCT USED FOR UNKNOWN INDICATION
     Dosage: D1200
     Route: 048
  10. NASONEX [Concomitant]
     Indication: PRODUCT USED FOR UNKNOWN INDICATION
     Dosage: 2 SPRAYS TO EACH NOSTRIL
     Route: 055
  11. DIFLUCAN [Concomitant]
     Indication: PRODUCT USED FOR UNKNOWN INDICATION
     Dosage: 150 mg, ONCE
     Route: 048

REACTIONS (10)
  - Pulmonary embolism [Unknown]
  - Deep vein thrombosis [Unknown]
  - Pulmonary infarction [Unknown]
  - Pharyngitis [Unknown]
  - Dermatitis [Unknown]
  - Lymphadenopathy [Unknown]
  - Blood disorder [Unknown]
  - Menstruation delayed [Unknown]
  - Acne [Unknown]
  - Abortion induced [Recovered/Resolved]
